FAERS Safety Report 26012382 (Version 1)
Quarter: 2025Q4

REPORT INFORMATION
  Report Type: Spontaneous
  Country: TW (occurrence: TW)
  Receive Date: 20251107
  Receipt Date: 20251107
  Transmission Date: 20260118
  Serious: Yes (Death, Other)
  Sender: PFIZER
  Company Number: TW-PFIZER INC-PV202500131610

PATIENT
  Sex: Female

DRUGS (1)
  1. XELJANZ XR [Suspect]
     Active Substance: TOFACITINIB CITRATE
     Indication: Rheumatoid arthritis
     Dosage: 11 MG, QD
     Route: 048
     Dates: start: 20200630

REACTIONS (2)
  - Death [Fatal]
  - Decreased appetite [Unknown]
